FAERS Safety Report 10092154 (Version 2)
Quarter: 2014Q2

REPORT INFORMATION
  Report Type: Spontaneous
  Country: US (occurrence: US)
  Receive Date: 20140421
  Receipt Date: 20140421
  Transmission Date: 20141212
  Serious: No
  Sender: FDA-Public Use
  Company Number: US-SANOFI-AVENTIS-2011SA077212

PATIENT
  Age: 78 Year
  Sex: Female

DRUGS (4)
  1. ALLEGRA [Suspect]
     Route: 048
  2. ANTACIDS [Concomitant]
  3. PRILOSEC [Concomitant]
  4. BIOTENE [Concomitant]

REACTIONS (6)
  - Dry mouth [Unknown]
  - Blood pressure decreased [Recovered/Resolved]
  - Extra dose administered [Unknown]
  - Insomnia [Unknown]
  - Urticaria [Not Recovered/Not Resolved]
  - Therapeutic response decreased [Unknown]
